FAERS Safety Report 18851476 (Version 2)
Quarter: 2021Q1

REPORT INFORMATION
  Report Type: Spontaneous
  Country: MT (occurrence: MT)
  Receive Date: 20210205
  Receipt Date: 20210309
  Transmission Date: 20210420
  Serious: Yes (Death)
  Sender: FDA-Public Use
  Company Number: NVSC2021MT027124

PATIENT
  Age: 59 Year
  Sex: Male

DRUGS (2)
  1. MEKINIST [Suspect]
     Active Substance: TRAMETINIB DIMETHYL SULFOXIDE
     Indication: THYROID CANCER METASTATIC
     Dosage: 2 MG, QD
     Route: 065
     Dates: start: 20191224
  2. TAFINLAR [Suspect]
     Active Substance: DABRAFENIB MESYLATE
     Indication: THYROID CANCER METASTATIC
     Dosage: 75 MG, QID
     Route: 065
     Dates: start: 20191224

REACTIONS (1)
  - Death [Fatal]

NARRATIVE: CASE EVENT DATE: 20210303
